FAERS Safety Report 19451997 (Version 4)
Quarter: 2023Q1

REPORT INFORMATION
  Report Type: Spontaneous
  Country: US (occurrence: None)
  Receive Date: 20210623
  Receipt Date: 20230214
  Transmission Date: 20230418
  Serious: Yes (Other)
  Sender: FDA-Public Use
  Company Number: US-ROCHE-2855353

PATIENT
  Age: 61 Year
  Sex: Female

DRUGS (3)
  1. OCREVUS [Suspect]
     Active Substance: OCRELIZUMAB
     Indication: Multiple sclerosis
     Dosage: STRENGTH 300 MG/10 ML
     Route: 042
     Dates: start: 202001
  2. OCREVUS [Suspect]
     Active Substance: OCRELIZUMAB
     Dosage: STRENGTH 300 MG/10ML
     Route: 042
     Dates: start: 20200502
  3. OCREVUS [Suspect]
     Active Substance: OCRELIZUMAB
     Dosage: STRENGTH 300 MG/10 ML
     Route: 042
     Dates: start: 20200902

REACTIONS (1)
  - Multiple sclerosis relapse [Unknown]
